FAERS Safety Report 17733684 (Version 4)
Quarter: 2020Q3

REPORT INFORMATION
  Report Type: Report from Study
  Country: CA (occurrence: CA)
  Receive Date: 20200501
  Receipt Date: 20200822
  Transmission Date: 20201102
  Serious: Yes (Other)
  Sender: FDA-Public Use
  Company Number: PHHY2017CA167045

PATIENT
  Age: 63 Year
  Sex: Female

DRUGS (6)
  1. SANDOSTATIN LAR DEPOT [Suspect]
     Active Substance: OCTREOTIDE ACETATE
     Indication: METASTATIC CARCINOID TUMOUR
     Dosage: 30 MG, QMO (EVERY 4 WEEKS)
     Route: 030
     Dates: start: 20090723
  2. SANDOSTATIN LAR DEPOT [Suspect]
     Active Substance: OCTREOTIDE ACETATE
     Dosage: 30 MG, QMO (EVENRY 4 WEEKS)
     Route: 030
     Dates: start: 20131119
  3. ELIQUIS [Concomitant]
     Active Substance: APIXABAN
     Dosage: UNK
     Route: 065
     Dates: start: 2016, end: 2016
  4. SANDOSTATIN LAR DEPOT [Suspect]
     Active Substance: OCTREOTIDE ACETATE
  5. GABAPENTIN. [Concomitant]
     Active Substance: GABAPENTIN
     Indication: PAIN
     Dosage: 300 MG, QD
     Route: 065
     Dates: start: 20161027
  6. ELIQUIS [Concomitant]
     Active Substance: APIXABAN
     Indication: ANTICOAGULANT THERAPY
     Dosage: 2.5 MG, QD
     Route: 065
     Dates: start: 201610

REACTIONS (15)
  - Malignant neoplasm progression [Unknown]
  - Groin pain [Recovering/Resolving]
  - Stress [Unknown]
  - Anxiety [Recovering/Resolving]
  - Depressed mood [Recovering/Resolving]
  - Dizziness [Unknown]
  - Blood pressure increased [Unknown]
  - Suicidal ideation [Unknown]
  - Injection site bruising [Recovered/Resolved]
  - Accidental poisoning [Unknown]
  - Hepatic neoplasm [Unknown]
  - Osteoporosis [Unknown]
  - Arthralgia [Unknown]
  - Throat irritation [Unknown]
  - Dyspnoea [Unknown]

NARRATIVE: CASE EVENT DATE: 20170829
